FAERS Safety Report 4502352-0 (Version None)
Quarter: 2004Q4

REPORT INFORMATION
  Report Type: 
  Country: None (occurrence: None)
  Receive Date: 20041110
  Receipt Date: 20041028
  Transmission Date: 20050328
  Serious: Yes (Death, Life-Threatening, Hospitalization)
  Sender: FDA-Public Use
  Company Number: 034-0981-990119

PATIENT
  Age: 45 Year
  Sex: Male
  Weight: 79 kg

DRUGS (5)
  1. ATORVASTATIN (ATORVASTATIN) [Suspect]
     Indication: HYPERCHOLESTEROLAEMIA
     Dosage: SEE IMAGE
     Route: 048
     Dates: start: 19981002, end: 19981209
  2. ATORVASTATIN (ATORVASTATIN) [Suspect]
     Indication: HYPERCHOLESTEROLAEMIA
     Dosage: SEE IMAGE
     Route: 048
     Dates: start: 19981210, end: 19990808
  3. ASPIRIN [Concomitant]
  4. BISOPROLOL FUMARATE [Concomitant]
  5. GEMFIBROZIL [Concomitant]

REACTIONS (8)
  - ANGINA PECTORIS [None]
  - BRONCHOPNEUMONIA [None]
  - CHEST PAIN [None]
  - COLITIS ULCERATIVE [None]
  - DYSPNOEA [None]
  - POST PROCEDURAL COMPLICATION [None]
  - SEPSIS [None]
  - TOXIC DILATATION OF COLON [None]
